FAERS Safety Report 4842226-9 (Version None)
Quarter: 2005Q4

REPORT INFORMATION
  Report Type: 
  Country: None (occurrence: None)
  Receive Date: 20051129
  Receipt Date: 20050624
  Transmission Date: 20060501
  Serious: Yes (Hospitalization)
  Sender: FDA-Public Use
  Company Number: 2005BI012232

PATIENT
  Age: 51 Year
  Sex: Female

DRUGS (2)
  1. AVONEX [Suspect]
     Indication: MULTIPLE SCLEROSIS
     Dosage: 30 UG; QW; IM
     Route: 030
     Dates: start: 20030402
  2. AVONEX [Suspect]
     Indication: MULTIPLE SCLEROSIS
     Dosage: 30 UG; QW; IM
     Route: 030

REACTIONS (7)
  - DIARRHOEA [None]
  - DYSURIA [None]
  - LOSS OF CONSCIOUSNESS [None]
  - OBSTRUCTION [None]
  - POST PROCEDURAL COMPLICATION [None]
  - RENAL DISORDER [None]
  - VOMITING [None]
